FAERS Safety Report 23327220 (Version 1)
Quarter: 2023Q4

REPORT INFORMATION
  Report Type: Spontaneous
  Country: CN (occurrence: CN)
  Receive Date: 20231221
  Receipt Date: 20231221
  Transmission Date: 20240109
  Serious: Yes (Other)
  Sender: FDA-Public Use
  Company Number: None

PATIENT
  Age: 49 Year
  Sex: Female
  Weight: 54.5 kg

DRUGS (3)
  1. CYCLOPHOSPHAMIDE [Suspect]
     Active Substance: CYCLOPHOSPHAMIDE
     Indication: Benign hydatidiform mole
     Dosage: 800 MG, ONCE, DILUTED WITH 0.9% NS (500 ML)
     Route: 041
     Dates: start: 20231121, end: 20231121
  2. SODIUM CHLORIDE [Suspect]
     Active Substance: SODIUM CHLORIDE
     Indication: Medication dilution
     Dosage: 0.9% 500 ML, ONCE, USED TO DILUTE CYCLOPHOSPHAMIDE (800 MG)
     Route: 041
     Dates: start: 20231121, end: 20231121
  3. VINCRISTINE SULFATE [Suspect]
     Active Substance: VINCRISTINE SULFATE
     Indication: Benign hydatidiform mole
     Dosage: 1.3 MG, ONCE
     Route: 042
     Dates: start: 20231121, end: 20231121

REACTIONS (2)
  - Myelosuppression [Recovering/Resolving]
  - White blood cell count decreased [Unknown]

NARRATIVE: CASE EVENT DATE: 20231122
